FAERS Safety Report 4680738-1 (Version None)
Quarter: 2005Q2

REPORT INFORMATION
  Report Type: 
  Country: None (occurrence: None)
  Receive Date: 20050603
  Receipt Date: 20050520
  Transmission Date: 20051028
  Serious: Yes (Life-Threatening, Other)
  Sender: FDA-Public Use
  Company Number: GB-BOEHRINGER INGELHEIM PHARMACEUTICALS, INC.-2005-UK-00885UK

PATIENT
  Age: 82 Year
  Sex: Male
  Weight: 77.8 kg

DRUGS (7)
  1. SPIRIVA [Suspect]
     Indication: CHRONIC OBSTRUCTIVE PULMONARY DISEASE
     Dosage: 18 MCG ONCE DAILY
     Route: 055
     Dates: start: 20050502, end: 20050504
  2. ASPIRIN [Concomitant]
     Dosage: 75 MG ONCE DAILY
     Route: 065
  3. SIMVASTATIN [Concomitant]
     Dosage: 20 MG ONCE DAILY
     Route: 065
  4. ENALAPRIL MALEATE [Concomitant]
  5. VERAPAMIL [Concomitant]
     Dosage: 120 MG ONCE DAILY
     Route: 065
  6. BUDESONIDE [Concomitant]
     Route: 065
  7. IPRATROPIUM BROMIDE [Concomitant]
     Route: 065

REACTIONS (4)
  - ANAPHYLACTIC REACTION [None]
  - ANGIONEUROTIC OEDEMA [None]
  - HYPOTENSION [None]
  - SWELLING FACE [None]
